FAERS Safety Report 6516802-1 (Version None)
Quarter: 2009Q4

REPORT INFORMATION
  Report Type: 
  Country: None (occurrence: None)
  Receive Date: 20091223
  Receipt Date: 20091209
  Transmission Date: 20100525
  Serious: Yes (Death)
  Sender: FDA-Public Use
  Company Number: US-PFIZER INC-2009286278

PATIENT
  Sex: Male

DRUGS (9)
  1. REVATIO [Suspect]
     Indication: PULMONARY HYPERTENSION
     Dosage: 20 MG, 3X/DAY
  2. METOPROLOL [Concomitant]
     Dosage: 25 MG, 2X/DAY
  3. NORVASC [Concomitant]
     Dosage: 5 MG, 1X/DAY
  4. WARFARIN [Concomitant]
     Indication: DEEP VEIN THROMBOSIS
     Dosage: AS DIRECTED
  5. WARFARIN [Concomitant]
     Indication: PULMONARY EMBOLISM
  6. PREVACID [Concomitant]
     Dosage: UNK
  7. LASIX [Concomitant]
     Dosage: UNK
  8. TAMSULOSIN [Concomitant]
     Dosage: UNK
  9. VALSARTAN [Concomitant]
     Dosage: UNK

REACTIONS (1)
  - DEATH [None]
